FAERS Safety Report 8520995-4 (Version None)
Quarter: 2012Q3

REPORT INFORMATION
  Report Type: 
  Country: None (occurrence: None)
  Receive Date: 20120712
  Receipt Date: 20120712
  Transmission Date: 20120928
  Serious: Yes (Disabling, Other)
  Sender: FDA-Public Use
  Company Number: None

PATIENT
  Age: 4 Year
  Sex: Male
  Weight: 160 kg

DRUGS (1)
  1. LANTUS [Suspect]
     Indication: DIABETES MELLITUS
     Dosage: 4 UNITS TWICE DAILY
     Dates: start: 20060801, end: 20110801

REACTIONS (4)
  - INSOMNIA [None]
  - DEFAECATION URGENCY [None]
  - NERVOUS SYSTEM DISORDER [None]
  - DRUG HYPERSENSITIVITY [None]
